FAERS Safety Report 9253864 (Version 3)
Quarter: 2013Q4

REPORT INFORMATION
  Report Type: Spontaneous
  Country: US (occurrence: US)
  Receive Date: 20130425
  Receipt Date: 20131122
  Transmission Date: 20140711
  Serious: Yes (Hospitalization, Disabling, Other)
  Sender: FDA-Public Use
  Company Number: US-ASTRAZENECA-2013SE27308

PATIENT
  Age: 50 Year
  Sex: Female
  Weight: 53.5 kg

DRUGS (25)
  1. NEXIUM [Suspect]
     Indication: GASTROOESOPHAGEAL REFLUX DISEASE
     Dosage: THREE A DAY
     Route: 048
  2. NEXIUM [Suspect]
     Indication: VOMITING
     Dosage: THREE A DAY
     Route: 048
  3. NEXIUM [Suspect]
     Indication: HYPERCHLORHYDRIA
     Dosage: THREE A DAY
     Route: 048
  4. NEXIUM [Suspect]
     Indication: GASTROOESOPHAGEAL REFLUX DISEASE
     Route: 048
     Dates: start: 20031021
  5. NEXIUM [Suspect]
     Indication: VOMITING
     Route: 048
     Dates: start: 20031021
  6. NEXIUM [Suspect]
     Indication: HYPERCHLORHYDRIA
     Route: 048
     Dates: start: 20031021
  7. NEXIUM [Suspect]
     Indication: GASTROOESOPHAGEAL REFLUX DISEASE
     Route: 048
     Dates: start: 2004, end: 2010
  8. NEXIUM [Suspect]
     Indication: VOMITING
     Route: 048
     Dates: start: 2004, end: 2010
  9. NEXIUM [Suspect]
     Indication: HYPERCHLORHYDRIA
     Route: 048
     Dates: start: 2004, end: 2010
  10. PRILOSEC [Suspect]
     Indication: GASTROOESOPHAGEAL REFLUX DISEASE
     Dosage: TWO A DAY
     Route: 048
  11. PRILOSEC [Suspect]
     Indication: HYPERCHLORHYDRIA
     Dosage: TWO A DAY
     Route: 048
  12. PRILOSEC [Suspect]
     Indication: ULCER
     Dosage: TWO A DAY
     Route: 048
  13. PRILOSEC [Suspect]
     Indication: GASTROOESOPHAGEAL REFLUX DISEASE
     Dosage: 20 -40 MG/DAY
     Route: 048
     Dates: start: 199308, end: 2004
  14. PRILOSEC [Suspect]
     Indication: HYPERCHLORHYDRIA
     Dosage: 20 -40 MG/DAY
     Route: 048
     Dates: start: 199308, end: 2004
  15. PRILOSEC [Suspect]
     Indication: ULCER
     Dosage: 20 -40 MG/DAY
     Route: 048
     Dates: start: 199308, end: 2004
  16. PRILOSEC [Suspect]
     Indication: GASTROOESOPHAGEAL REFLUX DISEASE
     Route: 048
     Dates: start: 20030718
  17. PRILOSEC [Suspect]
     Indication: HYPERCHLORHYDRIA
     Route: 048
     Dates: start: 20030718
  18. PRILOSEC [Suspect]
     Indication: ULCER
     Route: 048
     Dates: start: 20030718
  19. PRILOSEC OTC [Suspect]
     Indication: GASTROOESOPHAGEAL REFLUX DISEASE
     Route: 048
     Dates: start: 201008
  20. FLEXERIL [Concomitant]
     Indication: MIGRAINE
     Route: 048
  21. ZOLOFT [Concomitant]
     Indication: ANXIETY
  22. HIGH BLOOD PRESSURE MED [Concomitant]
  23. CYCLOBENZAPRINE [Concomitant]
     Route: 048
     Dates: start: 20030418
  24. LOTREL [Concomitant]
     Dosage: 2.5/10 MG
     Route: 048
     Dates: start: 20030521
  25. PROCHLORPERAZINE [Concomitant]
     Dates: start: 20100503

REACTIONS (16)
  - Obstruction gastric [Unknown]
  - Foot fracture [Unknown]
  - Anaemia [Unknown]
  - Osteoporosis [Unknown]
  - Bone disorder [Unknown]
  - Nerve injury [Unknown]
  - Malabsorption [Unknown]
  - Syncope [Unknown]
  - Calcium deficiency [Unknown]
  - Vitamin D deficiency [Unknown]
  - Abdominal pain upper [Unknown]
  - Peptic ulcer [Unknown]
  - Malnutrition [Unknown]
  - Small intestinal haemorrhage [Unknown]
  - Condition aggravated [Unknown]
  - Anxiety [Unknown]
